FAERS Safety Report 8603435-6 (Version None)
Quarter: 2012Q3

REPORT INFORMATION
  Report Type: 
  Country: None (occurrence: None)
  Receive Date: 20120817
  Receipt Date: 20120813
  Transmission Date: 20120928
  Serious: Yes (Life-Threatening, Hospitalization, Other)
  Sender: FDA-Public Use
  Company Number: CN-ASTRAZENECA-2012SE57705

PATIENT
  Age: 24238 Day
  Sex: Male
  Weight: 66.5 kg

DRUGS (6)
  1. OMEPRAZOLE/SODIUM BICARBONATE [Suspect]
     Indication: HYPERCHLORHYDRIA
     Route: 042
     Dates: start: 20110803, end: 20110805
  2. CEFUROXIME [Suspect]
     Dosage: 1.5 TWO TIMES A DAY
     Route: 065
     Dates: start: 20110803, end: 20110805
  3. DEXAMETHASONE [Suspect]
     Route: 065
  4. MONOSIALOGANGLIOSIDE [Suspect]
     Route: 065
     Dates: start: 20110803, end: 20110805
  5. TRANEXAMIC ACID [Suspect]
     Route: 065
     Dates: start: 20110803, end: 20110805
  6. MANNITOL [Suspect]
     Route: 065
     Dates: start: 20110803, end: 20110805

REACTIONS (4)
  - ALANINE AMINOTRANSFERASE INCREASED [None]
  - DEPRESSION [None]
  - SUICIDE ATTEMPT [None]
  - DELIRIUM [None]
